FAERS Safety Report 24635524 (Version 2)
Quarter: 2025Q3

REPORT INFORMATION
  Report Type: Spontaneous
  Country: EU (occurrence: EU)
  Receive Date: 20241119
  Receipt Date: 20250809
  Transmission Date: 20251020
  Serious: Yes (Hospitalization, Other)
  Sender: ALEXION PHARMACEUTICALS
  Company Number: EU-ASTRAZENECA-202410GLO024932FR

PATIENT
  Age: 25 Year
  Sex: Female

DRUGS (4)
  1. QUETIAPINE FUMARATE [Suspect]
     Active Substance: QUETIAPINE FUMARATE
  2. OLANZAPINE [Concomitant]
     Active Substance: OLANZAPINE
     Dates: start: 20240922, end: 20240922
  3. ALPRAZOLAM [Concomitant]
     Active Substance: ALPRAZOLAM
  4. FLUOXETINE [Concomitant]
     Active Substance: FLUOXETINE HYDROCHLORIDE

REACTIONS (4)
  - Poisoning deliberate [Recovered/Resolved]
  - Bradypnoea [Recovered/Resolved]
  - Miosis [Recovered/Resolved]
  - Coma [Recovered/Resolved]

NARRATIVE: CASE EVENT DATE: 20240922
